FAERS Safety Report 13936110 (Version 1)
Quarter: 2017Q3

REPORT INFORMATION
  Report Type: Spontaneous
  Country: US (occurrence: US)
  Receive Date: 20170905
  Receipt Date: 20170905
  Transmission Date: 20171127
  Serious: Yes (Death, Other)
  Sender: FDA-Public Use
  Company Number: US-PFIZER INC-2017361014

PATIENT
  Age: 54 Year
  Sex: Male

DRUGS (27)
  1. MIRALAX [Concomitant]
     Active Substance: POLYETHYLENE GLYCOL 3350
     Indication: CONSTIPATION
     Dosage: UNK (1 TO 2 TIMES A DAY) (17 GM WITH 8 OUNCES OF WATER)
     Route: 048
  2. COENZYME Q10 [Concomitant]
     Active Substance: UBIDECARENONE
     Indication: ASTHENIA
     Dosage: 100 MG, 1X/DAY
     Route: 048
  3. B COMPLEX + VITAMIN B6 [Concomitant]
     Indication: ASTHENIA
     Dosage: 1 DF, 1X/DAY (WITH FOOD)
     Route: 048
  4. MOVANTIK [Concomitant]
     Active Substance: NALOXEGOL OXALATE
     Dosage: 25 MG, 1X/DAY
     Route: 048
  5. LIDODERM [Concomitant]
     Active Substance: LIDOCAINE
     Dosage: APPLIED OVER AFFECTED AREA, PLACE ON FOR 12 HOURS AND REMOVE PATCHES FOR 12 HOURS
     Route: 061
  6. PHILLIPS ORIGINAL MILK OF MAGNESIA [Concomitant]
     Active Substance: MAGNESIUM HYDROXIDE
     Indication: CONSTIPATION
     Dosage: 15 ML, ONCE OR TWICE DAILY
     Route: 048
  7. CYCLOBENZAPRINE. [Concomitant]
     Active Substance: CYCLOBENZAPRINE
     Indication: MUSCLE SPASMS
     Dosage: ONE TIME (INCOMPLETE SENTENCE), TWO TIMES A DAY
     Route: 048
  8. MAGNESIUM CITRATE. [Concomitant]
     Active Substance: MAGNESIUM CITRATE
     Indication: CONSTIPATION
     Dosage: UNK UNK, 1X/DAY  (1 TO 2 CAPSULE) (AT BED TIME)
     Route: 048
  9. SODIUM CHLORIDE. [Concomitant]
     Active Substance: SODIUM CHLORIDE
     Dosage: 2 G, 2X/DAY
     Route: 048
  10. METOPROLOL SUCCINATE. [Concomitant]
     Active Substance: METOPROLOL SUCCINATE
     Indication: BLOOD PRESSURE ABNORMAL
  11. IBRANCE [Suspect]
     Active Substance: PALBOCICLIB
     Indication: NEOPLASM MALIGNANT
     Dosage: 125 MG, 1X/DAY, (FOR THREE WEEKS)
     Route: 048
  12. METOPROLOL SUCCINATE. [Concomitant]
     Active Substance: METOPROLOL SUCCINATE
     Indication: CARDIAC DISORDER
     Dosage: 50 MG, 2X/DAY
     Route: 048
  13. MELATONIN [Concomitant]
     Active Substance: MELATONIN
     Indication: SLEEP DISORDER
  14. GABAPENTIN. [Concomitant]
     Active Substance: GABAPENTIN
     Indication: NEUROPATHY PERIPHERAL
     Dosage: 300 MG, 3X/DAY, (FOR 30 DAYS)
     Route: 048
  15. ZOLPIDEM [Suspect]
     Active Substance: ZOLPIDEM\ZOLPIDEM TARTRATE
     Indication: INSOMNIA
     Dosage: HALF A TABLET, 1X/DAY
  16. AMITIZA [Concomitant]
     Active Substance: LUBIPROSTONE
     Indication: CONSTIPATION
     Dosage: 24 UG, 2X/DAY
     Route: 048
  17. PANTOPRAZOLE [Concomitant]
     Active Substance: PANTOPRAZOLE
     Dosage: 40 MG, 1X/DAY
     Route: 048
  18. FENTANYL. [Concomitant]
     Active Substance: FENTANYL
     Dosage: 100 MG, UNK, (ONE PATCH EVERY 72 HOURS)
     Route: 062
  19. AMLODIPINE [Concomitant]
     Active Substance: AMLODIPINE BESYLATE
     Dosage: 5 MG, 2X/DAY, (FOR 30 DAYS)
     Route: 048
  20. VITAMIN D3 [Concomitant]
     Active Substance: CHOLECALCIFEROL
     Dosage: 2000 IU, 2X/DAY
     Route: 048
  21. MELATONIN [Concomitant]
     Active Substance: MELATONIN
     Indication: IMMUNE SYSTEM DISORDER
     Dosage: 20 MG, 1X/DAY (AT BED TIME)
     Route: 048
  22. REMERON [Concomitant]
     Active Substance: MIRTAZAPINE
     Indication: APPETITE DISORDER
     Dosage: 15 MG, 1X/DAY, (AT BED TIME)
     Route: 048
  23. SENNA [Concomitant]
     Active Substance: SENNA LEAF\SENNOSIDES\SENNOSIDES A AND B
     Indication: CONSTIPATION
     Dosage: 17.2 MG, 3X/DAY
  24. B COMPLEX + VITAMIN B6 [Concomitant]
     Indication: NEUROPATHY PERIPHERAL
  25. MELATONIN [Concomitant]
     Active Substance: MELATONIN
     Indication: PROPHYLAXIS
  26. OXYCODONE [Concomitant]
     Active Substance: OXYCODONE
     Indication: PAIN
     Dosage: ONE TO TWO TABLETS EVERY 4 HOURS , MAXIMUM OF 10 TABLET IN 24 HOURS
     Route: 048
  27. GABAPENTIN. [Concomitant]
     Active Substance: GABAPENTIN
     Indication: PAIN

REACTIONS (2)
  - Product use issue [Unknown]
  - Death [Fatal]
